FAERS Safety Report 12738824 (Version 1)
Quarter: 2016Q3

REPORT INFORMATION
  Report Type: Spontaneous
  Country: US (occurrence: US)
  Receive Date: 20160912
  Receipt Date: 20160912
  Transmission Date: 20161109
  Serious: No
  Sender: FDA-Public Use
  Company Number: US-MISSION PHARMACAL COMPANY-1057253

PATIENT
  Age: 57 Year
  Sex: Male

DRUGS (1)
  1. THIOLA [Suspect]
     Active Substance: TIOPRONIN
     Indication: CYSTINURIA
     Dates: start: 20160813

REACTIONS (3)
  - Pruritus [Unknown]
  - Rash pruritic [Recovered/Resolved]
  - Burning sensation [None]

NARRATIVE: CASE EVENT DATE: 20160901
